FAERS Safety Report 11803884 (Version 9)
Quarter: 2020Q4

REPORT INFORMATION
  Report Type: Other
  Country: GB (occurrence: GB)
  Receive Date: 20151204
  Receipt Date: 20201105
  Transmission Date: 20210113
  Serious: Yes (Hospitalization)
  Sender: FDA-Public Use
  Company Number: GB-ROCHE-1671632

PATIENT
  Age: 45 Year
  Sex: Female

DRUGS (17)
  1. PERTUZUMAB. [Suspect]
     Active Substance: PERTUZUMAB
     Indication: BREAST CANCER METASTATIC
     Dosage: DATE OF MOST RECENT DOSE (420 MG) OF PERTUZUMAB  15/JUL/2016
     Route: 042
     Dates: start: 20150804
  2. EXEMESTANE. [Suspect]
     Active Substance: EXEMESTANE
     Indication: BREAST CANCER METASTATIC
     Route: 048
  3. DOCETAXEL. [Suspect]
     Active Substance: DOCETAXEL
     Indication: BREAST CANCER METASTATIC
     Route: 042
     Dates: start: 20150814, end: 20151117
  4. CO-AMOXICLAV [Concomitant]
     Active Substance: AMOXICILLIN\CLAVULANATE POTASSIUM
  5. GENTAMICIN. [Concomitant]
     Active Substance: GENTAMICIN
  6. TRASTUZUMAB. [Suspect]
     Active Substance: TRASTUZUMAB
     Indication: BREAST CANCER METASTATIC
     Route: 058
     Dates: start: 20160723
  7. BISOPROLOL [Concomitant]
     Active Substance: BISOPROLOL
  8. TRASTUZUMAB. [Suspect]
     Active Substance: TRASTUZUMAB
     Indication: BREAST CANCER METASTATIC
     Dosage: DATE OF MOST RECENT DOSE ( 600MG ) OF TRASTUZUMAB: 23/JUN/2016
     Route: 042
     Dates: start: 20151217, end: 20160308
  9. CIPROFLOXACIN. [Concomitant]
     Active Substance: CIPROFLOXACIN
  10. PARACETAMOL [Concomitant]
     Active Substance: ACETAMINOPHEN
  11. DEXAMETHASONE. [Concomitant]
     Active Substance: DEXAMETHASONE
  12. DENOSUMAB [Concomitant]
     Active Substance: DENOSUMAB
  13. DIFFLAM [Concomitant]
     Active Substance: BENZYDAMINE HYDROCHLORIDE
  14. TAZOCIN [Concomitant]
     Active Substance: PIPERACILLIN SODIUM\TAZOBACTAM SODIUM
  15. RAMIPRIL. [Concomitant]
     Active Substance: RAMIPRIL
  16. MEROPENEM. [Concomitant]
     Active Substance: MEROPENEM
  17. IBANDRONIC ACID. [Concomitant]
     Active Substance: IBANDRONIC ACID

REACTIONS (14)
  - Epistaxis [Recovered/Resolved]
  - Gingival swelling [Recovered/Resolved]
  - Fatigue [Recovered/Resolved]
  - Lymphoedema [Recovered/Resolved]
  - Rash [Recovered/Resolved]
  - Device related infection [Recovered/Resolved]
  - Gastrooesophageal reflux disease [Recovered/Resolved]
  - Anaemia [Recovered/Resolved]
  - Ejection fraction decreased [Recovered/Resolved]
  - Alopecia [Recovered/Resolved]
  - Diarrhoea [Recovered/Resolved]
  - Influenza like illness [Recovered/Resolved]
  - Hot flush [Recovered/Resolved]
  - Mucosal inflammation [Recovered/Resolved]

NARRATIVE: CASE EVENT DATE: 20150809
